FAERS Safety Report 25905597 (Version 1)
Quarter: 2025Q4

REPORT INFORMATION
  Report Type: Spontaneous
  Country: EU (occurrence: None)
  Receive Date: 20251010
  Receipt Date: 20251010
  Transmission Date: 20260117
  Serious: Yes (Disabling)
  Sender: ORION
  Company Number: None

PATIENT
  Age: 31 Year
  Sex: Male

DRUGS (1)
  1. METHOTREXATE SODIUM [Suspect]
     Active Substance: METHOTREXATE SODIUM
     Indication: Psoriatic arthropathy
     Dosage: STRENGTH: 10.97 MG
     Dates: start: 2024, end: 2025

REACTIONS (2)
  - Hepatic fibrosis [Unknown]
  - Jaundice [Unknown]

NARRATIVE: CASE EVENT DATE: 20240101
